FAERS Safety Report 22140705 (Version 1)
Quarter: 2023Q1

REPORT INFORMATION
  Report Type: Spontaneous
  Country: US (occurrence: None)
  Receive Date: 20230327
  Receipt Date: 20230327
  Transmission Date: 20230417
  Serious: Yes (Hospitalization, Other)
  Sender: FDA-Public Use
  Company Number: US-MLMSERVICE-20230309-4150118-1

PATIENT
  Age: 57 Year
  Sex: Male

DRUGS (3)
  1. HEPARIN [Suspect]
     Active Substance: HEPARIN SODIUM
     Indication: Acute myocardial infarction
     Dosage: UNKNOWN
     Route: 065
  2. CLOPIDOGREL [Concomitant]
     Active Substance: CLOPIDOGREL BISULFATE
     Indication: Acute myocardial infarction
     Dosage: UNKNOWN
     Route: 065
  3. ASPIRIN [Concomitant]
     Active Substance: ASPIRIN
     Indication: Acute myocardial infarction
     Route: 065

REACTIONS (6)
  - Autoimmune heparin-induced thrombocytopenia [Recovering/Resolving]
  - Disseminated intravascular coagulation [Unknown]
  - Pulmonary embolism [Unknown]
  - Myocardial infarction [Unknown]
  - Vascular stent thrombosis [Unknown]
  - Cardiac ventricular thrombosis [Unknown]
